FAERS Safety Report 5417452-0 (Version None)
Quarter: 2007Q3

REPORT INFORMATION
  Report Type: 
  Country: None (occurrence: None)
  Receive Date: 20070718
  Receipt Date: 20070410
  Transmission Date: 20080115
  Serious: Yes (Disabling, Other)
  Sender: FDA-Public Use
  Company Number: 2007028657

PATIENT
  Age: 68 Year
  Sex: Female
  Weight: 84.4 kg

DRUGS (18)
  1. CELEBREX [Suspect]
     Indication: ARTHRITIS
     Dosage: 200 MG (200 MG, 1 IN 1 D)
     Dates: start: 19991214, end: 20000522
  2. LEVOXYL [Concomitant]
  3. DILACOR (DILTIAZEM HYDROCHLORIDE) [Concomitant]
  4. ZOLOFT [Concomitant]
  5. DYAZIDE [Concomitant]
  6. ESTRADIOL [Concomitant]
  7. ACIPHEX [Concomitant]
  8. ZYRTEC [Concomitant]
  9. LIPITOR [Concomitant]
  10. TRAZODONE HCL [Concomitant]
  11. FLONASE [Concomitant]
  12. ASTELIN [Concomitant]
  13. MULTIPLE VITAMINS (ASCORBIC ACID, ERGOCALCIFEROL, FOLIC ACID, RETINOL, [Concomitant]
  14. CALCIUM (CALCIUM) [Concomitant]
  15. VITAMIN C (VITAMIN C) [Concomitant]
  16. VITAMIN E [Concomitant]
  17. FOLIC ACID [Concomitant]
  18. ASPIRIN [Concomitant]

REACTIONS (2)
  - CEREBRAL INFARCTION [None]
  - CEREBROVASCULAR ACCIDENT [None]
